FAERS Safety Report 6384037-1 (Version None)
Quarter: 2009Q3

REPORT INFORMATION
  Report Type: 
  Country: None (occurrence: None)
  Receive Date: 20090928
  Receipt Date: 20090921
  Transmission Date: 20100115
  Serious: Yes (Other)
  Sender: FDA-Public Use
  Company Number: 2009SP023152

PATIENT
  Sex: Female

DRUGS (1)
  1. DESLORATADINE [Suspect]
     Indication: DRUG USE FOR UNKNOWN INDICATION
     Dosage: 5 MG; QD
     Dates: start: 20090201, end: 20090401

REACTIONS (3)
  - ANGIOEDEMA [None]
  - SKIN TEST POSITIVE [None]
  - URTICARIA [None]
